FAERS Safety Report 10141614 (Version 1)
Quarter: 2014Q2

REPORT INFORMATION
  Report Type: Spontaneous
  Country: US (occurrence: US)
  Receive Date: 20140429
  Receipt Date: 20140429
  Transmission Date: 20141212
  Serious: Yes (Other)
  Sender: FDA-Public Use
  Company Number: US-ASTRAZENECA-2014SE27382

PATIENT
  Age: 61 Year
  Sex: Male

DRUGS (31)
  1. ATENOLOL [Suspect]
     Route: 065
  2. LISINOPRIL [Suspect]
     Route: 048
     Dates: start: 20130923
  3. OMEPRAZOLE [Suspect]
     Indication: DYSPEPSIA
     Route: 048
  4. OMEPRAZOLE [Suspect]
     Indication: GASTROOESOPHAGEAL REFLUX DISEASE
     Route: 048
  5. CETIRIZINE [Concomitant]
     Indication: HYPERSENSITIVITY
     Dosage: ONE PER DAY
  6. CINNAMON [Concomitant]
     Indication: TYPE 2 DIABETES MELLITUS
     Dosage: ONE PER DAY
  7. NASAL GEL [Concomitant]
     Indication: EPISTAXIS
  8. BABY ASPIRIN [Concomitant]
     Indication: CARDIAC DISORDER
     Dosage: ONE PER DAY
  9. MULTIVITAMIN [Concomitant]
     Dosage: ONE PER DAY
  10. OMEGA 3 [Concomitant]
  11. CO Q10 [Concomitant]
  12. CLONAZEPAM [Concomitant]
     Indication: ANXIETY
     Dosage: AT BEDTIME, 2 TO MAX 3 TABS
  13. ADVAIR DISKUS [Concomitant]
     Indication: ASTHMA
     Dosage: 250/50 TWO PUFFS PER DAY
  14. ALBUTEROL SULFATE [Concomitant]
     Dosage: 2.5 MG/3 ML PRN, EMERGENCY INHALER
     Route: 055
  15. TAMSULOSIN HCL [Concomitant]
     Indication: BLADDER DISORDER
     Dosage: 0.4 MG ONE TAB PER DAY
     Route: 048
     Dates: start: 20140217
  16. AZELASTINE [Concomitant]
     Dosage: TWICE PER DAY
  17. FLUTICASONE PROPIONATE [Concomitant]
     Dosage: TWO SPRAYS EACH NOSRTIL ONCE PER DAY
  18. FLUEXETENE HCL [Concomitant]
     Route: 048
     Dates: start: 20131119
  19. HUMALOG INSULIN [Concomitant]
     Indication: TYPE 2 DIABETES MELLITUS
     Dosage: 100 UNIT/ML 28 UNITS BEFORE DINNER/BED
     Route: 058
  20. GLIMEPREDEM [Concomitant]
     Indication: TYPE 2 DIABETES MELLITUS
  21. TRADJENTA BOEHRI [Concomitant]
     Indication: TYPE 2 DIABETES MELLITUS
  22. LANTUS SOLARSTAR [Concomitant]
     Indication: TYPE 2 DIABETES MELLITUS
     Dosage: 100 UNIT/ML 14 UNITS EACH MORNING
     Route: 058
  23. LYRICA [Concomitant]
     Indication: DIABETIC NEUROPATHY
     Route: 048
  24. RESTASIS [Concomitant]
     Indication: DRY EYE
     Dosage: ONE DROP EACH EYE TWICE PER DAY
     Route: 047
  25. HYDROCHLOROTHIAZIDE [Concomitant]
     Indication: OEDEMA PERIPHERAL
  26. LOVASTATIN [Concomitant]
     Indication: BLOOD CHOLESTEROL INCREASED
     Route: 048
     Dates: start: 20131022
  27. LOSARTAN POTASSIUM [Concomitant]
  28. FLUDROCORTISONE ACETATE [Concomitant]
     Indication: ORTHOSTATIC HYPOTENSION
     Dates: start: 20131119
  29. PRO-BIOTIC [Concomitant]
     Indication: DYSPEPSIA
  30. POTASSIUM CHLORIDE [Concomitant]
     Indication: BLOOD POTASSIUM DECREASED
     Dosage: ER 10 MEQ TWO CAPSULES TWICE PER DAY
     Route: 048
     Dates: start: 20130617
  31. ALIGN [Concomitant]
     Route: 048
     Dates: start: 20130514

REACTIONS (29)
  - Multiple system atrophy [Unknown]
  - Dyskinesia [Unknown]
  - Diabetic retinopathy [Unknown]
  - Urinary retention [Unknown]
  - Ataxia [Unknown]
  - Carpal tunnel syndrome [Unknown]
  - Cataract [Unknown]
  - Type 2 diabetes mellitus [Unknown]
  - Diabetic neuropathy [Unknown]
  - Hepatic steatosis [Unknown]
  - Hypertension [Unknown]
  - Obesity [Unknown]
  - Neuropathy peripheral [Unknown]
  - Sleep apnoea syndrome [Unknown]
  - Social phobia [Unknown]
  - Renal disorder [Unknown]
  - Bruxism [Unknown]
  - Oedema peripheral [Unknown]
  - Blood cholesterol increased [Unknown]
  - Hypotension [Unknown]
  - Dyspepsia [Unknown]
  - Nightmare [Unknown]
  - Gastrooesophageal reflux disease [Unknown]
  - Asthma [Unknown]
  - Depression [Unknown]
  - Hepatic enzyme increased [Unknown]
  - Dyspepsia [Unknown]
  - Dry eye [Unknown]
  - Off label use [Unknown]
